FAERS Safety Report 6647726-7 (Version None)
Quarter: 2010Q1

REPORT INFORMATION
  Report Type: 
  Country: None (occurrence: None)
  Receive Date: 20100323
  Receipt Date: 20100323
  Transmission Date: 20100710
  Serious: Yes (Disabling, Other)
  Sender: FDA-Public Use
  Company Number: None

PATIENT
  Age: 56 Year
  Sex: Female
  Weight: 65.7716 kg

DRUGS (1)
  1. LEVOTHYROXINE SODIUM [Suspect]
     Indication: HYPOTHYROIDISM
     Dosage: 50 MCG ONCE A DAY ORAL
     Route: 048
     Dates: start: 20090318, end: 20090504

REACTIONS (8)
  - APHONIA [None]
  - BODY TEMPERATURE DECREASED [None]
  - CONVULSION [None]
  - HYPERHIDROSIS [None]
  - MEMORY IMPAIRMENT [None]
  - MIGRAINE [None]
  - RASH [None]
  - VISUAL ACUITY REDUCED [None]
